FAERS Safety Report 6013488-X (Version None)
Quarter: 2008Q4

REPORT INFORMATION
  Report Type: 
  Country: None (occurrence: None)
  Receive Date: 20081219
  Receipt Date: 20081209
  Transmission Date: 20090506
  Serious: Yes (Other)
  Sender: FDA-Public Use
  Company Number: CA-JNJFOC-20080701105

PATIENT
  Sex: Male
  Weight: 141 kg

DRUGS (17)
  1. REMICADE [Suspect]
     Dosage: 14TH DOSE
     Route: 042
  2. REMICADE [Suspect]
     Dosage: DOSES 3 THROUGH 13
     Route: 042
  3. REMICADE [Suspect]
     Dosage: DOSES 3 THROUGH 13
     Route: 042
  4. REMICADE [Suspect]
     Dosage: DOSES 3 THROUGH 13
     Route: 042
  5. REMICADE [Suspect]
     Dosage: DOSES 3 THROUGH 13
     Route: 042
  6. REMICADE [Suspect]
     Dosage: DOSES 3 THROUGH 13
     Route: 042
  7. REMICADE [Suspect]
     Dosage: DOSES 3 THROUGH 13
     Route: 042
  8. REMICADE [Suspect]
     Dosage: DOSES 3 THROUGH 13
     Route: 042
  9. REMICADE [Suspect]
     Dosage: DOSES 3 THROUGH 13
     Route: 042
  10. REMICADE [Suspect]
     Dosage: DOSES 3 THROUGH 13
     Route: 042
  11. REMICADE [Suspect]
     Dosage: DOSES 3 THROUGH 13
     Route: 042
  12. REMICADE [Suspect]
     Dosage: DOSES 3 THROUGH 13
     Route: 042
  13. REMICADE [Suspect]
     Dosage: 2ND DOSE
     Route: 042
  14. REMICADE [Suspect]
     Indication: RHEUMATOID ARTHRITIS
     Dosage: 1ST DOSE
     Route: 042
  15. METHOTREXATE [Concomitant]
     Route: 030
  16. PREDNISONE TAB [Concomitant]
  17. PLAQUENIL [Concomitant]

REACTIONS (1)
  - BASAL CELL CARCINOMA [None]
